FAERS Safety Report 8852116 (Version 1)
Quarter: 2012Q4

REPORT INFORMATION
  Report Type: Spontaneous
  Country: DK (occurrence: None)
  Receive Date: 20121017
  Receipt Date: 20121017
  Transmission Date: 20130627
  Serious: Yes (Other)
  Sender: FDA-Public Use
  Company Number: 2012MA012308

PATIENT
  Age: 64 Year
  Sex: Female

DRUGS (4)
  1. IRINOTECAN HYDROCHLORIDE [Suspect]
     Indication: CHEMOTHERAPY
  2. ELOXATIN [Suspect]
     Indication: CHEMOTHERAPY
     Route: 042
  3. FLUOROURACIL [Suspect]
     Indication: CHEMOTHERAPY
  4. CALCIUM FOLINATE [Suspect]

REACTIONS (8)
  - Dyspnoea [None]
  - Neuropathy peripheral [None]
  - Febrile neutropenia [None]
  - Laryngospasm [None]
  - Dyspepsia [None]
  - Pyrexia [None]
  - Constipation [None]
  - Lethargy [None]
